FAERS Safety Report 8104774-8 (Version None)
Quarter: 2012Q1

REPORT INFORMATION
  Report Type: 
  Country: None (occurrence: None)
  Receive Date: 20120130
  Receipt Date: 20120116
  Transmission Date: 20120608
  Serious: Yes (Death, Hospitalization)
  Sender: FDA-Public Use
  Company Number: EU-2011-10281

PATIENT
  Age: 68 Year
  Sex: Male
  Weight: 59 kg

DRUGS (18)
  1. SAMSCA [Suspect]
     Indication: INAPPROPRIATE ANTIDIURETIC HORMONE SECRETION
     Dosage: 15 MG MILLIGRAM(S), DAILY DOSE, ORAL
     Route: 048
     Dates: start: 20111127, end: 20111202
  2. CARVEDILOL [Concomitant]
  3. RAMIPRIL [Concomitant]
  4. CIPROFLOXACIN [Concomitant]
  5. WARFARIN SODIUM [Concomitant]
  6. CITALOPRAM HYDROBROMIDE [Concomitant]
  7. CLOPIDOGREL [Concomitant]
  8. ESPIRONOLACTON (SPIRONOLACTONE) [Concomitant]
  9. LORAZEPAM [Concomitant]
  10. ACETAMINOPHEN [Concomitant]
  11. TAMSULOSIN HCL [Concomitant]
  12. ACETYLSALICYLIC ACID (ACETYISALICYLIC ACID) [Concomitant]
  13. TORSEMIDE [Concomitant]
  14. SULPIRIDE (SULPIRIDE) [Concomitant]
  15. INEORAZIKE *INEORAZIKE( [Concomitant]
  16. ATORVASTATIN [Concomitant]
  17. HYDROCORTONE [Concomitant]
  18. AMIODARONE HCL [Concomitant]

REACTIONS (16)
  - ABDOMINAL PAIN UPPER [None]
  - VOMITING [None]
  - ALKALOSIS HYPOKALAEMIC [None]
  - URINARY TRACT INFECTION [None]
  - CARDIAC FAILURE ACUTE [None]
  - HAEMATEMESIS [None]
  - LEUKOCYTOSIS [None]
  - HYPERBILIRUBINAEMIA [None]
  - CYSTITIS [None]
  - PLEURAL EFFUSION [None]
  - ASPIRATION [None]
  - PYREXIA [None]
  - DYSPNOEA [None]
  - HEPATIC CONGESTION [None]
  - MALLORY-WEISS SYNDROME [None]
  - RESPIRATORY FAILURE [None]
